FAERS Safety Report 8458738 (Version 3)
Quarter: 2013Q1

REPORT INFORMATION
  Report Type: Spontaneous
  Country: JP (occurrence: JP)
  Receive Date: 20120314
  Receipt Date: 20130212
  Transmission Date: 20140127
  Serious: Yes (Death, Hospitalization, Other)
  Sender: FDA-Public Use
  Company Number: GB-GILEAD-2011-0048521

PATIENT
  Age: 69 Year
  Sex: Female

DRUGS (11)
  1. HEPSERA [Suspect]
     Indication: HEPATIC CIRRHOSIS
     Dosage: 10MG PER DAY
     Route: 048
     Dates: start: 20070925, end: 20111218
  2. ZEFIX [Concomitant]
     Indication: HEPATIC CIRRHOSIS
     Dosage: 100MG PER DAY
     Route: 048
     Dates: start: 20040301, end: 20111218
  3. SELBEX [Concomitant]
     Route: 048
  4. GASTER [Concomitant]
     Route: 048
  5. PURSENNID                          /00571902/ [Concomitant]
     Route: 048
  6. HEPARIN SODIUM [Concomitant]
  7. ALDACTONE A [Concomitant]
     Route: 048
  8. SLOW-K [Concomitant]
     Route: 048
  9. ACTONEL [Concomitant]
     Route: 048
  10. LENDORMIN [Concomitant]
     Route: 048
  11. DEPAS [Concomitant]
     Route: 048

REACTIONS (10)
  - Hepatic failure [Fatal]
  - Fanconi syndrome acquired [Not Recovered/Not Resolved]
  - Metabolic acidosis [Unknown]
  - Renal tubular disorder [Unknown]
  - Decreased appetite [Unknown]
  - Chills [Unknown]
  - Pyrexia [Unknown]
  - Polyuria [Unknown]
  - Hypokalaemia [Unknown]
  - Hyperchloraemia [Unknown]
